FAERS Safety Report 8438334-6 (Version None)
Quarter: 2012Q2

REPORT INFORMATION
  Report Type: 
  Country: None (occurrence: None)
  Receive Date: 20120614
  Receipt Date: 20120608
  Transmission Date: 20120825
  Serious: Yes (Other)
  Sender: FDA-Public Use
  Company Number: US-ENDO PHARMACEUTICALS INC.-OPCR20121374

PATIENT
  Sex: Female

DRUGS (2)
  1. OPANA ER [Suspect]
     Indication: PAIN IN EXTREMITY
     Dosage: UNKNOWN
     Route: 048
     Dates: start: 20120522, end: 20120525
  2. OPANA ER [Suspect]
     Indication: BACK PAIN

REACTIONS (5)
  - OROPHARYNGEAL BLISTERING [None]
  - DYSPHAGIA [None]
  - GINGIVAL ERYTHEMA [None]
  - GINGIVAL RECESSION [None]
  - GINGIVAL INFECTION [None]
